FAERS Safety Report 20500342 (Version 1)
Quarter: 2022Q1

REPORT INFORMATION
  Report Type: Spontaneous
  Country: US (occurrence: None)
  Receive Date: 20220219
  Receipt Date: 20220219
  Transmission Date: 20220423
  Serious: No
  Sender: FDA-Public Use
  Company Number: None

PATIENT
  Sex: Male
  Weight: 76.6 kg

DRUGS (2)
  1. AZACITIDINE [Suspect]
     Active Substance: AZACITIDINE
     Indication: Product used for unknown indication
  2. VENETOCLAX [Suspect]
     Active Substance: VENETOCLAX

REACTIONS (2)
  - Anaemia [None]
  - Transfusion [None]

NARRATIVE: CASE EVENT DATE: 20210715
